FAERS Safety Report 7364331-8 (Version None)
Quarter: 2011Q1

REPORT INFORMATION
  Report Type: 
  Country: None (occurrence: None)
  Receive Date: 20110321
  Receipt Date: 20110310
  Transmission Date: 20110831
  Serious: Yes (Hospitalization)
  Sender: FDA-Public Use
  Company Number: JP-ASTRAZENECA-2011SE00030

PATIENT
  Age: 25675 Day
  Sex: Male
  Weight: 77 kg

DRUGS (10)
  1. BLOPRESS [Suspect]
     Dosage: UNKNOWN
     Route: 048
     Dates: end: 20101117
  2. PANCREAZE [Concomitant]
     Dosage: UNKNOWN
     Route: 048
     Dates: end: 20101117
  3. SELARA [Concomitant]
     Dosage: UNKNOWN
     Route: 048
     Dates: start: 20100821, end: 20101117
  4. ASPIRIN [Concomitant]
     Indication: PROPHYLAXIS
     Dosage: UNKNOWN
     Route: 048
     Dates: end: 20101117
  5. VOGLIBOSE [Suspect]
     Indication: GLUCOSE TOLERANCE IMPAIRED
     Route: 048
     Dates: start: 20100421, end: 20101117
  6. HERBESSER R [Concomitant]
     Dosage: UNKNOWN
     Route: 048
     Dates: end: 20101117
  7. URSO 250 [Concomitant]
     Dosage: UNKNOWN
     Route: 048
     Dates: end: 20101117
  8. PIMENOL [Concomitant]
     Dosage: UNKNOWN
     Route: 048
     Dates: end: 20101117
  9. LOXONIN TAPE [Concomitant]
     Dosage: UNKNOWN
     Route: 062
     Dates: end: 20101117
  10. ADALAT CC [Concomitant]
     Dosage: UNKNOWN
     Route: 048
     Dates: end: 20101117

REACTIONS (4)
  - PNEUMONIA [None]
  - PULMONARY EMBOLISM [None]
  - CARDIAC FAILURE [None]
  - CONSTIPATION [None]
